FAERS Safety Report 15843627 (Version 3)
Quarter: 2019Q3

REPORT INFORMATION
  Report Type: Spontaneous
  Country: US (occurrence: US)
  Receive Date: 20190118
  Receipt Date: 20190731
  Transmission Date: 20191004
  Serious: Yes (Other)
  Sender: FDA-Public Use
  Company Number: US-ASTRAZENECA-2018SF65897

PATIENT
  Age: 29630 Day
  Sex: Male
  Weight: 79.4 kg

DRUGS (22)
  1. LEVOTHYROXINE SODIUM. [Concomitant]
     Active Substance: LEVOTHYROXINE SODIUM
     Dosage: 88 MCG 1 TAB DAILY
     Route: 048
     Dates: start: 20160603
  2. PRILOSEC [Suspect]
     Active Substance: OMEPRAZOLE MAGNESIUM
     Route: 048
     Dates: start: 2012, end: 2017
  3. CEPHALEXIN. [Concomitant]
     Active Substance: CEPHALEXIN
  4. ATORVASTATIN CALCIUM. [Concomitant]
     Active Substance: ATORVASTATIN CALCIUM
     Route: 048
     Dates: start: 20160603
  5. PRILOSEC [Suspect]
     Active Substance: OMEPRAZOLE MAGNESIUM
     Dosage: GENERIC
     Route: 048
     Dates: start: 20121221
  6. PRILOSEC [Suspect]
     Active Substance: OMEPRAZOLE MAGNESIUM
     Dosage: GENERIC
     Route: 048
     Dates: start: 20161007
  7. PROTONIX [Suspect]
     Active Substance: PANTOPRAZOLE SODIUM
     Route: 065
  8. AMOXICILLIN. [Concomitant]
     Active Substance: AMOXICILLIN
  9. ALLOPURINOL. [Concomitant]
     Active Substance: ALLOPURINOL
  10. ALPRAZOLAM. [Concomitant]
     Active Substance: ALPRAZOLAM
     Route: 048
     Dates: start: 20140303
  11. NEXIUM [Suspect]
     Active Substance: ESOMEPRAZOLE MAGNESIUM
     Route: 048
     Dates: start: 2012, end: 2017
  12. DEXILANT [Suspect]
     Active Substance: DEXLANSOPRAZOLE
     Route: 065
     Dates: start: 2012, end: 2017
  13. PROTONIX [Suspect]
     Active Substance: PANTOPRAZOLE SODIUM
     Dosage: GENERIC PANTOPRAZOLE SODIUM
     Route: 048
     Dates: start: 20160603
  14. VITAMIN D [Concomitant]
     Active Substance: VITAMIN D NOS
     Dosage: 2000 UNIT 1 TAB DAILY
     Route: 048
     Dates: start: 20160603
  15. NEXIUM [Suspect]
     Active Substance: ESOMEPRAZOLE MAGNESIUM
     Route: 048
     Dates: start: 20120706
  16. PEPCID [Concomitant]
     Active Substance: FAMOTIDINE
  17. DEXILANT [Suspect]
     Active Substance: DEXLANSOPRAZOLE
     Route: 048
     Dates: start: 20120904
  18. PREVACID [Suspect]
     Active Substance: LANSOPRAZOLE
     Route: 065
  19. PROTONIX [Suspect]
     Active Substance: PANTOPRAZOLE SODIUM
     Dosage: GENERIC PANTOPRAZOLE SODIUM
     Route: 048
     Dates: start: 2012, end: 2017
  20. METOPROLOL. [Concomitant]
     Active Substance: METOPROLOL
  21. ZANTAC [Concomitant]
     Active Substance: RANITIDINE HYDROCHLORIDE
  22. LOSARTAN. [Concomitant]
     Active Substance: LOSARTAN

REACTIONS (4)
  - Rebound acid hypersecretion [Unknown]
  - Chronic kidney disease [Unknown]
  - Renal failure [Unknown]
  - End stage renal disease [Unknown]

NARRATIVE: CASE EVENT DATE: 20160429
